FAERS Safety Report 8546940-3 (Version None)
Quarter: 2012Q3

REPORT INFORMATION
  Report Type: 
  Country: None (occurrence: None)
  Receive Date: 20120727
  Receipt Date: 20120120
  Transmission Date: 20120928
  Serious: No
  Sender: FDA-Public Use
  Company Number: US-ASTRAZENECA-2012SE04381

PATIENT
  Sex: Female

DRUGS (2)
  1. SEROQUEL [Suspect]
     Indication: BIPOLAR DISORDER
     Route: 048
  2. TYLENOL PM [Concomitant]

REACTIONS (6)
  - DRUG DOSE OMISSION [None]
  - MALAISE [None]
  - TREMOR [None]
  - INSOMNIA [None]
  - TACHYPHRENIA [None]
  - ABNORMAL DREAMS [None]
